FAERS Safety Report 7271898-7 (Version None)
Quarter: 2011Q1

REPORT INFORMATION
  Report Type: 
  Country: None (occurrence: None)
  Receive Date: 20110126
  Receipt Date: 20110112
  Transmission Date: 20110831
  Serious: Yes (Life-Threatening, Hospitalization)
  Sender: FDA-Public Use
  Company Number: 1000018231

PATIENT
  Age: 34 Year
  Sex: Male

DRUGS (7)
  1. PERINDOPRIL (PERINDOPRIL) [Suspect]
  2. DOXAZOSIN (DOXAZOSIN) [Suspect]
  3. AMLODIPINE [Suspect]
  4. CITALOPRAM (CITALOPRAM HYDROBROMIDE) [Suspect]
     Dosage: (24 MG,ONCE)
  5. CO-CODAMOL(CODEINE, PARACETAMOL) [Suspect]
  6. DIAZEPAM [Suspect]
     Dosage: (140 MG, ONCE)
  7. TEMAZEPAM [Suspect]
     Dosage: (120 MG, ONCE)

REACTIONS (10)
  - HYPOTENSION [None]
  - POISONING [None]
  - ANION GAP INCREASED [None]
  - BLOOD LACTIC ACID INCREASED [None]
  - LOSS OF CONSCIOUSNESS [None]
  - HYPOXIA [None]
  - METABOLIC ACIDOSIS [None]
  - HEART RATE INCREASED [None]
  - CRYSTALLURIA [None]
  - MULTIPLE DRUG OVERDOSE [None]
